FAERS Safety Report 25357075 (Version 3)
Quarter: 2025Q4

REPORT INFORMATION
  Report Type: Spontaneous
  Country: EU (occurrence: EU)
  Receive Date: 20250526
  Receipt Date: 20251202
  Transmission Date: 20260118
  Serious: Yes (Hospitalization)
  Sender: ROCHE
  Company Number: EU-ROCHE-10000288448

PATIENT
  Age: 79 Year
  Sex: Female

DRUGS (2)
  1. OBINUTUZUMAB [Suspect]
     Active Substance: OBINUTUZUMAB
     Indication: Diffuse large B-cell lymphoma
     Dosage: RECENT DOSE ON: 07/JAN/2025:
     Route: 065
     Dates: start: 20241218, end: 20241222
  2. GLOFITAMAB [Suspect]
     Active Substance: GLOFITAMAB
     Indication: Diffuse large B-cell lymphoma
     Route: 065
     Dates: start: 20250114

REACTIONS (4)
  - Pneumonia [Unknown]
  - Oxygen saturation decreased [Unknown]
  - Deep vein thrombosis [Unknown]
  - Escherichia urinary tract infection [Unknown]
